FAERS Safety Report 12633311 (Version 3)
Quarter: 2016Q3

REPORT INFORMATION
  Report Type: Spontaneous
  Country: US (occurrence: US)
  Receive Date: 20160808
  Receipt Date: 20160808
  Transmission Date: 20161109
  Serious: No
  Sender: FDA-Public Use
  Company Number: US-BEH-2016060463

PATIENT
  Sex: Female
  Weight: 67 kg

DRUGS (32)
  1. ACETAMINOPHEN. [Concomitant]
     Active Substance: ACETAMINOPHEN
  2. PLAQUENIL [Concomitant]
     Active Substance: HYDROXYCHLOROQUINE SULFATE
  3. GENTEAL MILD [Concomitant]
     Active Substance: HYPROMELLOSE 2910 (4000 MPA.S)
  4. AZASITE [Concomitant]
     Active Substance: AZITHROMYCIN MONOHYDRATE
  5. OXYGEN. [Concomitant]
     Active Substance: OXYGEN
  6. SINGULAIR [Concomitant]
     Active Substance: MONTELUKAST SODIUM
  7. HIZENTRA [Suspect]
     Active Substance: HUMAN IMMUNOGLOBULIN G
     Indication: IMMUNODEFICIENCY COMMON VARIABLE
     Route: 058
  8. EPIPEN [Concomitant]
     Active Substance: EPINEPHRINE
  9. MUCINEX ER [Concomitant]
  10. NEURONTIN [Concomitant]
     Active Substance: GABAPENTIN
  11. VIVELLE-DOT [Concomitant]
     Active Substance: ESTRADIOL
  12. VAGIFEM [Concomitant]
     Active Substance: ESTRADIOL
  13. ATROVENT [Concomitant]
     Active Substance: IPRATROPIUM BROMIDE
  14. RHINOCORT AQUA [Concomitant]
     Active Substance: BUDESONIDE
  15. BACTRIM DS [Concomitant]
     Active Substance: SULFAMETHOXAZOLE\TRIMETHOPRIM
  16. SYNTHROID [Concomitant]
     Active Substance: LEVOTHYROXINE SODIUM
  17. ACIPHEX EC [Concomitant]
  18. CIMETIDINE [Concomitant]
     Active Substance: CIMETIDINE
  19. LIDOCAINE. [Concomitant]
     Active Substance: LIDOCAINE
  20. VITAMIN D [Concomitant]
     Active Substance: CHOLECALCIFEROL
  21. VITAMIN C [Concomitant]
     Active Substance: ASCORBIC ACID
  22. ZINC GLUCONATE [Concomitant]
     Active Substance: ZINC GLUCONATE
  23. DEXAMETHASONE. [Concomitant]
     Active Substance: DEXAMETHASONE
  24. CELEBREX [Concomitant]
     Active Substance: CELECOXIB
  25. QVAR [Concomitant]
     Active Substance: BECLOMETHASONE DIPROPIONATE
  26. ALIGN [Concomitant]
     Active Substance: BIFIDOBACTERIUM LONGUM SUBSP. INFANTIS
  27. SEREVENT DISKUS [Concomitant]
     Active Substance: SALMETEROL XINAFOATE
  28. DIPHENHYDRAMINE. [Concomitant]
     Active Substance: DIPHENHYDRAMINE
  29. LIDOCAINE/PRILOCAINE [Concomitant]
     Active Substance: LIDOCAINE\PRILOCAINE
  30. NASOGEL [Concomitant]
  31. LOTEMAX [Concomitant]
     Active Substance: LOTEPREDNOL ETABONATE
  32. RESTASIS [Concomitant]
     Active Substance: CYCLOSPORINE

REACTIONS (1)
  - Sinusitis [Unknown]
